FAERS Safety Report 9274708 (Version 1)
Quarter: 2013Q2

REPORT INFORMATION
  Report Type: Spontaneous
  Country: US (occurrence: None)
  Receive Date: 20130430
  Receipt Date: 20130430
  Transmission Date: 20140414
  Serious: Yes (Life-Threatening, Hospitalization)
  Sender: FDA-Public Use
  Company Number: None

PATIENT
  Age: 53 Year
  Sex: Female
  Weight: 77.11 kg

DRUGS (1)
  1. AVELOX [Suspect]
     Indication: BRONCHITIS
     Route: 048
     Dates: start: 20130404, end: 20130407

REACTIONS (11)
  - Vomiting [None]
  - Burning sensation [None]
  - Headache [None]
  - Heart rate increased [None]
  - Product taste abnormal [None]
  - Product odour abnormal [None]
  - Dizziness [None]
  - Asthenia [None]
  - Arthralgia [None]
  - Dizziness [None]
  - Palpitations [None]
